FAERS Safety Report 9594206 (Version 1)
Quarter: 2013Q3

REPORT INFORMATION
  Report Type: Spontaneous
  Country: US (occurrence: None)
  Receive Date: 20130923
  Receipt Date: 20130923
  Transmission Date: 20140515
  Serious: Yes (Other)
  Sender: FDA-Public Use
  Company Number: 2013STPI000243

PATIENT
  Age: 84 Year
  Sex: Female
  Weight: 62.6 kg

DRUGS (8)
  1. MATULANE (PROCARBAZINE HYDROCHLORIDE) CAPSULE, 50MG [Suspect]
     Indication: MANTLE CELL LYMPHOMA
     Dates: start: 20130604, end: 20130624
  2. RITUXIMAB (RITUXIMAB) [Concomitant]
  3. CYTOXAN (CYCLOPHOSPHAMIDE) [Concomitant]
  4. ETOPOSIDE (ETOPOSIDE) [Concomitant]
  5. PREDNISONE  (PREDNISONE) [Concomitant]
  6. ETOPOSIDE (ETOPOSIDE ) [Concomitant]
  7. PREDNISONE (PREDNISONE) [Concomitant]
  8. JANUMET (METFORMIN HYDROCHLORIDE, SITAGLIPTIN PHOSPHAGE MONOHYDRATE) [Concomitant]

REACTIONS (2)
  - Renal haemorrhage [None]
  - Platelet count decreased [None]
